FAERS Safety Report 7249394-2 (Version None)
Quarter: 2011Q1

REPORT INFORMATION
  Report Type: 
  Country: None (occurrence: None)
  Receive Date: 20110128
  Receipt Date: 20101130
  Transmission Date: 20110831
  Serious: Yes (Hospitalization)
  Sender: FDA-Public Use
  Company Number: US-BAYER-201029735NA

PATIENT
  Sex: Female
  Weight: 109.75 kg

DRUGS (8)
  1. YASMIN [Suspect]
     Indication: PREMENSTRUAL SYNDROME
  2. MULTI-VITAMIN [Concomitant]
     Indication: VITAMIN SUPPLEMENTATION
     Dosage: 1 DF, QD
  3. ALLERGY MEDICATION [Concomitant]
     Indication: MULTIPLE ALLERGIES
     Dosage: 1 DF, QD
  4. EXCEDRIN (MIGRAINE) [Concomitant]
     Indication: HEADACHE
  5. IBUPROFEN [Concomitant]
     Indication: INFLAMMATION
  6. YASMIN [Suspect]
     Indication: CONTRACEPTION
     Dosage: UNK UNK, UNK
     Route: 048
     Dates: start: 20080101, end: 20080601
  7. OCELLA [Suspect]
     Indication: PREMENSTRUAL SYNDROME
  8. OCELLA [Suspect]
     Indication: CONTRACEPTION
     Dosage: UNK UNK, UNK
     Route: 048
     Dates: start: 20080701, end: 20091101

REACTIONS (4)
  - BILIARY COLIC [None]
  - MENTAL DISORDER [None]
  - CHOLECYSTITIS CHRONIC [None]
  - CHOLELITHIASIS [None]
